FAERS Safety Report 7940409 (Version 4)
Quarter: 2012Q4

REPORT INFORMATION
  Report Type: Report from Study
  Country: DE (occurrence: DE)
  Receive Date: 20110511
  Receipt Date: 20121219
  Transmission Date: 20130627
  Serious: Yes (Hospitalization)
  Sender: FDA-Public Use
  Company Number: DE-JNJFOC-20110503848

PATIENT
  Age: 82 Year
  Sex: Female
  Weight: 91 kg

DRUGS (11)
  1. PALEXIA RETARD [Suspect]
     Indication: ARTHRALGIA
     Route: 048
     Dates: end: 20101224
  2. PALEXIA RETARD [Suspect]
     Indication: ARTHRALGIA
     Route: 048
     Dates: start: 20101027
  3. PALEXIA RETARD [Suspect]
     Indication: BACK PAIN
     Route: 048
     Dates: end: 20101224
  4. PALEXIA RETARD [Suspect]
     Indication: BACK PAIN
     Route: 048
     Dates: start: 20101027
  5. BELOC ZOK [Concomitant]
     Indication: HYPERTENSION
     Route: 065
  6. METAMIZOLE [Concomitant]
     Indication: PAIN
     Route: 065
  7. AMITRIPTYLINE [Concomitant]
  8. NSAIDS [Concomitant]
     Indication: PAIN
     Route: 065
  9. EBRANTIL [Concomitant]
     Indication: HYPERTENSION
     Route: 065
  10. VOTUMPLUS [Concomitant]
     Indication: HYPERTENSION
     Route: 065
  11. VESIKUR [Concomitant]
     Indication: INCONTINENCE
     Route: 065

REACTIONS (1)
  - Fall [Recovered/Resolved]
